FAERS Safety Report 24784061 (Version 1)
Quarter: 2024Q4

REPORT INFORMATION
  Report Type: Report from Study
  Country: JP (occurrence: JP)
  Receive Date: 20241227
  Receipt Date: 20241227
  Transmission Date: 20250115
  Serious: Yes (Other)
  Sender: ALEXION PHARMACEUTICALS
  Company Number: JP-AstraZeneca-CH-00504071A

PATIENT
  Age: 17 Year
  Weight: 65 kg

DRUGS (4)
  1. KOSELUGO [Suspect]
     Active Substance: SELUMETINIB
     Indication: Neurofibroma
     Dosage: 45 MILLIGRAM, BID, MOSTLY ON AN EMPTY STOMACH
  2. KOSELUGO [Suspect]
     Active Substance: SELUMETINIB
     Dosage: 45 MILLIGRAM, BID, MOSTLY ON AN EMPTY STOMACH
     Route: 048
  3. KOSELUGO [Suspect]
     Active Substance: SELUMETINIB
     Dosage: 45 MILLIGRAM, BID, MOSTLY ON AN EMPTY STOMACH
  4. KOSELUGO [Suspect]
     Active Substance: SELUMETINIB
     Dosage: 45 MILLIGRAM, BID, MOSTLY ON AN EMPTY STOMACH
     Route: 048

REACTIONS (2)
  - Cardiac dysfunction [Not Recovered/Not Resolved]
  - Acne [Recovered/Resolved]
